FAERS Safety Report 10033942 (Version 1)
Quarter: 2014Q1

REPORT INFORMATION
  Report Type: Spontaneous
  Country: US (occurrence: None)
  Receive Date: 20140324
  Receipt Date: 20140324
  Transmission Date: 20141002
  Serious: No
  Sender: FDA-Public Use
  Company Number: None

PATIENT
  Age: 78 Year
  Sex: Female
  Weight: 86.64 kg

DRUGS (1)
  1. RITUXAN [Suspect]
     Indication: WALDENSTROM^S MACROGLOBULINAEMIA
     Dosage: IVSS
     Route: 042
     Dates: start: 20140320

REACTIONS (2)
  - Tremor [None]
  - Chills [None]
